FAERS Safety Report 15410545 (Version 3)
Quarter: 2018Q4

REPORT INFORMATION
  Report Type: Spontaneous
  Country: CA (occurrence: CA)
  Receive Date: 20180921
  Receipt Date: 20181217
  Transmission Date: 20190204
  Serious: Yes (Other)
  Sender: FDA-Public Use
  Company Number: CA-CELLTRION INC.-2018CA022592

PATIENT

DRUGS (6)
  1. INFLECTRA [Suspect]
     Active Substance: INFLIXIMAB-DYYB
     Dosage: 5 MG/KG (600 MG);
     Route: 042
     Dates: start: 20180907
  2. INFLECTRA [Suspect]
     Active Substance: INFLIXIMAB-DYYB
     Dosage: 5 MG/KG, CYCLIC (600 MG) ON WEEK 0,2,6, THEN EVERY 8 WEEKS
     Route: 042
     Dates: start: 20181203
  3. INFLECTRA [Suspect]
     Active Substance: INFLIXIMAB-DYYB
     Indication: COLITIS ULCERATIVE
     Dosage: 5 MG/KG, (600 MG) ON WEEK 0,2,6, THEN EVERY 8 WEEKS
     Route: 042
     Dates: start: 20180820
  4. HYDROCORTISONE. [Concomitant]
     Active Substance: HYDROCORTISONE
     Route: 065
  5. ACETAMINOPHEN. [Concomitant]
     Active Substance: ACETAMINOPHEN
     Route: 065
  6. INFLECTRA [Suspect]
     Active Substance: INFLIXIMAB-DYYB
     Dosage: 5 MG/KG, CYCLIC (600 MG) ON WEEK 0,2,6, THEN EVERY 8 WEEKS
     Route: 042
     Dates: start: 20181005

REACTIONS (9)
  - Alopecia [Unknown]
  - Weight increased [Unknown]
  - Productive cough [Unknown]
  - Rectal haemorrhage [Unknown]
  - Dysphonia [Unknown]
  - Cough [Unknown]
  - Wheezing [Unknown]
  - Condition aggravated [Unknown]
  - Heart rate irregular [Unknown]

NARRATIVE: CASE EVENT DATE: 2018
